FAERS Safety Report 10570294 (Version 1)
Quarter: 2014Q4

REPORT INFORMATION
  Report Type: Spontaneous
  Country: ES (occurrence: None)
  Receive Date: 20141105
  Receipt Date: 20141105
  Transmission Date: 20150529
  Serious: Yes (Death)
  Sender: FDA-Public Use
  Company Number: FK201404726

PATIENT
  Age: 62 Year
  Sex: Female

DRUGS (6)
  1. BEVACIZUMAB [Concomitant]
     Active Substance: BEVACIZUMAB
  2. OXALIPLATIN. [Concomitant]
     Active Substance: OXALIPLATIN
  3. FOLINIC ACID [Concomitant]
     Active Substance: LEUCOVORIN
  4. BRIVUDINE [Suspect]
     Active Substance: BRIVUDINE
     Indication: HERPES VIRUS INFECTION
  5. FLUOROURACIL (MANUFACTURER UNKNOWN) (FLUOROURACIL) (FLUOROURACIL) [Suspect]
     Active Substance: FLUOROURACIL
     Indication: ADENOCARCINOMA OF COLON
     Dosage: CYCLICAL
     Route: 040
  6. FAMCICLOVIR. [Concomitant]
     Active Substance: FAMCICLOVIR

REACTIONS (13)
  - Dysphagia [None]
  - Respiratory failure [None]
  - Alopecia [None]
  - Leukopenia [None]
  - Oral pain [None]
  - Neurotoxicity [None]
  - Thrombocytopenia [None]
  - Neutropenia [None]
  - Sepsis [None]
  - Abdominal pain [None]
  - Pigmentation disorder [None]
  - Drug interaction [None]
  - Melaena [None]
